FAERS Safety Report 9351555 (Version 4)
Quarter: 2013Q3

REPORT INFORMATION
  Report Type: Report from Study
  Country: UA (occurrence: UA)
  Receive Date: 20130617
  Receipt Date: 20130731
  Transmission Date: 20140515
  Serious: Yes (Hospitalization, Other)
  Sender: FDA-Public Use
  Company Number: UA-ASTRAZENECA-2012SE87675

PATIENT
  Age: 24313 Day
  Sex: Female

DRUGS (10)
  1. AZD6140 [Suspect]
     Indication: CORONARY ARTERY DISEASE
     Route: 048
     Dates: start: 20120329, end: 20121113
  2. ASA [Interacting]
     Route: 048
     Dates: end: 20121119
  3. SIOFOR [Concomitant]
     Indication: TYPE 2 DIABETES MELLITUS
     Route: 048
  4. CARDIKET [Concomitant]
     Indication: ANGINA PECTORIS
     Route: 048
  5. CORDARON [Concomitant]
     Indication: ATRIAL FIBRILLATION
     Route: 048
     Dates: end: 20121112
  6. SIMVASTATIN [Concomitant]
     Indication: ANGINA PECTORIS
     Route: 048
  7. ARIXTRA [Concomitant]
     Indication: ACUTE MYOCARDIAL INFARCTION
     Route: 058
     Dates: start: 20121112, end: 20121112
  8. LISINOPRILUM [Concomitant]
     Indication: HYPERTENSION
     Route: 048
     Dates: end: 20121111
  9. INDAPAMID [Concomitant]
     Indication: HYPERTENSION
     Route: 048
     Dates: end: 20121111
  10. TORASEMIDUM [Concomitant]
     Indication: CARDIAC FAILURE
     Route: 048
     Dates: start: 20120320, end: 20121111

REACTIONS (2)
  - Thrombocytopenia [Recovered/Resolved]
  - Hypertensive crisis [Recovered/Resolved]
